FAERS Safety Report 18844526 (Version 1)
Quarter: 2021Q1

REPORT INFORMATION
  Report Type: Report from Study
  Country: US (occurrence: US)
  Receive Date: 20210203
  Receipt Date: 20210203
  Transmission Date: 20210419
  Serious: No
  Sender: FDA-Public Use
  Company Number: US-EXELIXIS-CABO-20026883

PATIENT
  Sex: Male

DRUGS (3)
  1. CABOMETYX [Suspect]
     Active Substance: CABOZANTINIB S-MALATE
     Dosage: 40 MG
     Dates: start: 20200219
  2. CABOMETYX [Suspect]
     Active Substance: CABOZANTINIB S-MALATE
     Indication: RENAL CANCER
     Dosage: 60 MG
     Dates: start: 20191213, end: 20200209
  3. ATIVAN [Concomitant]
     Active Substance: LORAZEPAM

REACTIONS (20)
  - Gastritis [Recovered/Resolved]
  - Paraesthesia [Not Recovered/Not Resolved]
  - Headache [Recovered/Resolved]
  - Blister [Recovered/Resolved]
  - Blood pressure increased [Recovering/Resolving]
  - Asthenia [Unknown]
  - Depression [Recovered/Resolved]
  - Dry skin [Not Recovered/Not Resolved]
  - Taste disorder [Recovering/Resolving]
  - Dyspnoea [Recovered/Resolved]
  - Decreased appetite [Unknown]
  - Fatigue [Recovering/Resolving]
  - Tremor [Unknown]
  - Pruritus [Unknown]
  - Oropharyngeal pain [Recovered/Resolved]
  - Insomnia [Recovering/Resolving]
  - Stomatitis [Recovered/Resolved]
  - Dehydration [Recovered/Resolved]
  - Diarrhoea [Recovering/Resolving]
  - Abdominal discomfort [Recovered/Resolved]
